FAERS Safety Report 6666595-2 (Version None)
Quarter: 2010Q2

REPORT INFORMATION
  Report Type: 
  Country: None (occurrence: None)
  Receive Date: 20100404
  Receipt Date: 20090908
  Transmission Date: 20101027
  Serious: No
  Sender: FDA-Public Use
  Company Number: US-ALLERGAN-0912583US

PATIENT
  Age: 34 Year
  Sex: Female

DRUGS (2)
  1. ZYMAR [Suspect]
     Indication: ULCERATIVE KERATITIS
     Dosage: 2 GTT, Q2HR
     Route: 047
     Dates: start: 20090901, end: 20090904
  2. ZYMAR [Suspect]
     Indication: EYE INFECTION
     Dosage: 1 GTT, Q2HR
     Route: 047
     Dates: start: 20090905, end: 20090907

REACTIONS (6)
  - DISORIENTATION [None]
  - DIZZINESS [None]
  - DRUG ADMINISTRATION ERROR [None]
  - DRUG INEFFECTIVE [None]
  - MALAISE [None]
  - NASOPHARYNGITIS [None]
